FAERS Safety Report 15062025 (Version 2)
Quarter: 2018Q3

REPORT INFORMATION
  Report Type: Report from Study
  Country: US (occurrence: US)
  Receive Date: 20180625
  Receipt Date: 20180717
  Transmission Date: 20181010
  Serious: Yes (Hospitalization)
  Sender: FDA-Public Use
  Company Number: US-ACTELION-A-NJ2018-174206

PATIENT
  Age: 65 Year
  Sex: Female
  Weight: 72.56 kg

DRUGS (3)
  1. OPSUMIT [Suspect]
     Active Substance: MACITENTAN
     Indication: PULMONARY ARTERIAL HYPERTENSION
     Dosage: 10 MG, QD
     Route: 048
  2. ADCIRCA [Concomitant]
     Active Substance: TADALAFIL
  3. VELETRI [Suspect]
     Active Substance: EPOPROSTENOL
     Indication: PULMONARY ARTERIAL HYPERTENSION
     Dosage: 8 NG/KG, PER MIN
     Route: 042

REACTIONS (10)
  - Cancer surgery [Unknown]
  - Lacrimation decreased [Unknown]
  - Pain in jaw [Unknown]
  - Pollakiuria [Unknown]
  - Lacrimation increased [Unknown]
  - Trismus [Unknown]
  - Eye irritation [Unknown]
  - Fatigue [Unknown]
  - Malaise [Unknown]
  - Sleep deficit [Unknown]

NARRATIVE: CASE EVENT DATE: 20180611
